FAERS Safety Report 6076056-X (Version None)
Quarter: 2009Q1

REPORT INFORMATION
  Report Type: 
  Country: None (occurrence: None)
  Receive Date: 20090212
  Receipt Date: 20090206
  Transmission Date: 20090719
  Serious: Yes (Other)
  Sender: FDA-Public Use
  Company Number: FR-RB-007325-07

PATIENT
  Age: 38 Year
  Sex: Female
  Weight: 65 kg

DRUGS (5)
  1. SUBUTEX [Suspect]
     Indication: DRUG THERAPY
     Route: 042
     Dates: start: 19960101
  2. SUBUTEX [Suspect]
     Route: 060
     Dates: start: 19960101
  3. SUBUTEX [Suspect]
     Dosage: DOSING INFORMATION UNKNOWN
     Dates: start: 20030101, end: 20080514
  4. VALIUM [Concomitant]
     Indication: ANXIETY
     Dosage: DOSING INFORMATION UNKNOWN
  5. NORSET [Concomitant]
     Indication: DEPRESSION
     Dosage: DOSING INFORMATION UNKNOWN

REACTIONS (2)
  - INTENTIONAL DRUG MISUSE [None]
  - LYMPHOEDEMA [None]
